FAERS Safety Report 5518968-9 (Version None)
Quarter: 2007Q4

REPORT INFORMATION
  Report Type: 
  Country: None (occurrence: None)
  Receive Date: 20071116
  Receipt Date: 20071109
  Transmission Date: 20080405
  Serious: Yes (Other)
  Sender: FDA-Public Use
  Company Number: PHBS2007JP15094

PATIENT
  Age: 75 Year
  Sex: Male

DRUGS (3)
  1. ZADITEN [Suspect]
     Indication: DERMATITIS
     Dosage: 20 MG, QD
     Route: 048
     Dates: start: 20070710, end: 20070831
  2. ATELEC [Concomitant]
     Dosage: 20 MG, UNK
     Route: 048
     Dates: start: 20060512
  3. MICARDIS [Concomitant]
     Dosage: 20 MG, UNK
     Route: 048
     Dates: start: 20060512

REACTIONS (8)
  - ALANINE AMINOTRANSFERASE INCREASED [None]
  - ASPARTATE AMINOTRANSFERASE INCREASED [None]
  - BLOOD ALKALINE PHOSPHATASE INCREASED [None]
  - BLOOD CHOLESTEROL INCREASED [None]
  - BLOOD LACTATE DEHYDROGENASE INCREASED [None]
  - GAMMA-GLUTAMYLTRANSFERASE INCREASED [None]
  - HAEMATURIA [None]
  - HEPATIC FUNCTION ABNORMAL [None]
